FAERS Safety Report 15482161 (Version 1)
Quarter: 2018Q4

REPORT INFORMATION
  Report Type: Spontaneous
  Country: US (occurrence: US)
  Receive Date: 20181010
  Receipt Date: 20181010
  Transmission Date: 20190205
  Serious: Yes (Hospitalization)
  Sender: FDA-Public Use
  Company Number: US-NORTHSTAR HEALTHCARE HOLDINGS-US-2018NSR000147

PATIENT
  Age: 15 Year
  Sex: Male

DRUGS (2)
  1. BACLOFEN. [Suspect]
     Active Substance: BACLOFEN
     Indication: CEREBRAL PALSY
     Dosage: 599 ?G, QD
     Route: 037
  2. BACLOFEN. [Suspect]
     Active Substance: BACLOFEN
     Dosage: 540 ?G, QD
     Route: 037

REACTIONS (2)
  - Overdose [Unknown]
  - Mental status changes [Recovering/Resolving]
